FAERS Safety Report 5032538-0 (Version None)
Quarter: 2006Q2

REPORT INFORMATION
  Report Type: 
  Country: None (occurrence: None)
  Receive Date: 20060622
  Receipt Date: 20060616
  Transmission Date: 20061013
  Serious: Yes (Death)
  Sender: FDA-Public Use
  Company Number: 2006PK01328

PATIENT
  Age: 61 Year
  Sex: Male

DRUGS (9)
  1. SEROQUEL [Suspect]
     Route: 048
  2. MILNACIPRAN [Suspect]
  3. MIANSERIN [Suspect]
  4. CARBAMAZEPINE [Suspect]
  5. LORAZEPAM [Suspect]
  6. TRAMADOL HCL [Suspect]
  7. DOXAZOSIN [Suspect]
  8. PANTOPRAZOL [Suspect]
  9. ALENDRONAT [Suspect]

REACTIONS (1)
  - DEATH [None]
